FAERS Safety Report 24253737 (Version 1)
Quarter: 2024Q3

REPORT INFORMATION
  Report Type: Spontaneous
  Country: US (occurrence: None)
  Receive Date: 20240826
  Receipt Date: 20240826
  Transmission Date: 20241017
  Serious: Yes (Death)
  Sender: Public
  Company Number: None

PATIENT
  Age: 67 Year
  Sex: Male

DRUGS (10)
  1. CAPECITABINE [Suspect]
     Active Substance: CAPECITABINE
     Indication: Colon cancer stage IV
     Dosage: OTHER FREQUENCY : 2000MGAM1500GPM14DAYSON14OFF;?
     Dates: start: 20240423, end: 20240810
  2. ASPIRIN [Concomitant]
     Active Substance: ASPIRIN
  3. ATORVASTATIN [Concomitant]
     Active Substance: ATORVASTATIN
  4. CARVEDI LOL [Concomitant]
     Dosage: OTHER QUANTITY : 3.125MG;?
  5. DIPHENOXYLATEiATROPINE [Concomitant]
  6. DOCUSATE SOD [Concomitant]
  7. MIRALAX 3350 NF POWDER [Concomitant]
  8. ONDANSETRON [Concomitant]
     Active Substance: ONDANSETRON
  9. PROCHLORPERAZINE [Concomitant]
     Active Substance: PROCHLORPERAZINE
  10. OXALIPLATIN [Concomitant]
     Active Substance: OXALIPLATIN

REACTIONS (1)
  - Death [None]

NARRATIVE: CASE EVENT DATE: 20240810
